FAERS Safety Report 21635000 (Version 3)
Quarter: 2023Q1

REPORT INFORMATION
  Report Type: Report from Study
  Country: US (occurrence: US)
  Receive Date: 20221123
  Receipt Date: 20230226
  Transmission Date: 20230418
  Serious: No
  Sender: FDA-Public Use
  Company Number: US-ABBVIE-22K-163-4509587-00

PATIENT
  Sex: Female

DRUGS (2)
  1. SKYRIZI [Suspect]
     Active Substance: RISANKIZUMAB-RZAA
     Indication: Psoriasis
     Route: 058
     Dates: start: 20220720
  2. SKYRIZI [Suspect]
     Active Substance: RISANKIZUMAB-RZAA
     Indication: Psoriatic arthropathy
     Route: 058
     Dates: start: 20220726

REACTIONS (6)
  - Psoriasis [Recovering/Resolving]
  - Acne [Not Recovered/Not Resolved]
  - Papule [Unknown]
  - Rash macular [Unknown]
  - Drug ineffective [Unknown]
  - Skin odour abnormal [Not Recovered/Not Resolved]
